FAERS Safety Report 6903406-1 (Version None)
Quarter: 2010Q3

REPORT INFORMATION
  Report Type: 
  Country: None (occurrence: None)
  Receive Date: 20100803
  Receipt Date: 20080926
  Transmission Date: 20110219
  Serious: No
  Sender: FDA-Public Use
  Company Number: US-PFIZER INC-2008060960

PATIENT
  Sex: Female
  Weight: 102.06 kg

DRUGS (7)
  1. LYRICA [Suspect]
     Indication: FIBROMYALGIA
     Route: 048
     Dates: start: 20070912
  2. FLEXERIL [Concomitant]
  3. LORTAB [Concomitant]
  4. NEXIUM [Concomitant]
  5. ANTIDEPRESSANTS [Concomitant]
  6. XANAX [Concomitant]
  7. CELEBREX [Concomitant]

REACTIONS (2)
  - DIABETIC NEUROPATHY [None]
  - DRUG HYPERSENSITIVITY [None]
